FAERS Safety Report 5937799-9 (Version None)
Quarter: 2008Q4

REPORT INFORMATION
  Report Type: 
  Country: None (occurrence: None)
  Receive Date: 20081029
  Receipt Date: 20081020
  Transmission Date: 20090506
  Serious: Yes (Hospitalization)
  Sender: FDA-Public Use
  Company Number: 2008SP015692

PATIENT
  Age: 71 Year
  Sex: Male
  Weight: 88 kg

DRUGS (5)
  1. TEMODAL [Suspect]
     Indication: GLIOBLASTOMA
     Dosage: 200 MG;QD;PO
     Route: 048
     Dates: start: 20080609, end: 20080615
  2. FORTECORTIN [Concomitant]
  3. AMLODIPINE [Concomitant]
  4. RAMIPRIL [Concomitant]
  5. HYDROCHLOROTHIAZIDE [Concomitant]

REACTIONS (4)
  - BRAIN OEDEMA [None]
  - GENERAL PHYSICAL HEALTH DETERIORATION [None]
  - NEOPLASM PROGRESSION [None]
  - PYREXIA [None]
